FAERS Safety Report 7166133 (Version 8)
Quarter: 2012Q4

REPORT INFORMATION
  Report Type: 
  Country: CA (occurrence: CA)
  Receive Date: 20091103
  Receipt Date: 20121231
  Transmission Date: 20130627
  Serious: Yes (Death, Hospitalization, Other)
  Sender: FDA-Public Use
  Company Number: PHHY2009CA46396

PATIENT
  Age: 82 Year
  Sex: Male

DRUGS (1)
  1. ZOMETA [Suspect]
     Indication: PROSTATE CANCER
     Dosage: 3.5 mg, every 12 weeks
     Route: 042
     Dates: start: 20070714, end: 20120111

REACTIONS (12)
  - Death [Fatal]
  - Malaise [Unknown]
  - Blood testosterone decreased [Unknown]
  - Prostatic specific antigen increased [Unknown]
  - Terminal state [Unknown]
  - Blood pressure diastolic decreased [Unknown]
  - Hypophagia [Unknown]
  - Muscle atrophy [Unknown]
  - Weight decreased [Unknown]
  - Nausea [Recovered/Resolved]
  - Vomiting [Recovered/Resolved]
  - Asthenia [Unknown]
